FAERS Safety Report 16867431 (Version 1)
Quarter: 2019Q3

REPORT INFORMATION
  Report Type: Spontaneous
  Country: NL (occurrence: NL)
  Receive Date: 20190930
  Receipt Date: 20190930
  Transmission Date: 20191005
  Serious: Yes (Hospitalization, Other)
  Sender: FDA-Public Use
  Company Number: NL-SEBELA IRELAND LIMITED-2019SEB00219

PATIENT
  Sex: Female

DRUGS (1)
  1. PAROXETINE. [Suspect]
     Active Substance: PAROXETINE
     Dosage: 30 MG, 1X/DAY
     Route: 064

REACTIONS (4)
  - Long QT syndrome [Recovered/Resolved]
  - Atrioventricular block second degree [Recovered/Resolved]
  - Exposure during pregnancy [Recovered/Resolved]
  - Bradycardia [Recovered/Resolved]
